FAERS Safety Report 8820407 (Version 1)
Quarter: 2012Q4

REPORT INFORMATION
  Report Type: Report from Study
  Country: FR (occurrence: FR)
  Receive Date: 20121002
  Receipt Date: 20121002
  Transmission Date: 20130627
  Serious: Yes (Hospitalization)
  Sender: FDA-Public Use
  Company Number: FR-009507513-1209FRA008272

PATIENT
  Age: 4 Year
  Sex: Female

DRUGS (4)
  1. TEMODAL [Suspect]
     Indication: NEOPLASM
     Dosage: 130 mg, qd
     Route: 048
     Dates: start: 20120716, end: 20120720
  2. TEMODAL [Suspect]
     Dosage: 130 mg, qd
     Route: 048
     Dates: start: 20120816, end: 20120820
  3. HYCAMTIN [Suspect]
     Indication: NEOPLASM
     Dosage: 0.65 mg, qd
     Route: 042
     Dates: start: 20120716, end: 20120720
  4. HYCAMTIN [Suspect]
     Dosage: 0.65 mg, qd
     Route: 042
     Dates: start: 20120816, end: 20120820

REACTIONS (2)
  - Dizziness [Recovered/Resolved]
  - Nausea [Recovered/Resolved]
